FAERS Safety Report 9525025 (Version 1)
Quarter: 2013Q3

REPORT INFORMATION
  Report Type: Spontaneous
  Country: US (occurrence: None)
  Receive Date: 20130912
  Receipt Date: 20130912
  Transmission Date: 20140515
  Serious: Yes (Hospitalization)
  Sender: FDA-Public Use
  Company Number: JPI-P-034818

PATIENT
  Age: 70 Year
  Sex: Female
  Weight: 81.6 kg

DRUGS (12)
  1. XYREM (SODIUM OXYBATE) ORAL SOLUTION, 500MG/ML [Suspect]
     Indication: NARCOLEPSY
     Route: 048
     Dates: start: 20030213, end: 20030526
  2. XYREM (SODIUM OXYBATE) ORAL SOLUTION, 500MG/ML [Suspect]
     Indication: CATAPLEXY
     Route: 048
     Dates: start: 20030213, end: 20030526
  3. INSULIN (INSULIN) [Concomitant]
  4. VICODIN (HYDROCODONE BITARTRATE, PARACETAMOL) [Concomitant]
  5. PROVIGIL (MODAFINIL) [Concomitant]
  6. NEURONTIN (GABAPENTIN) [Concomitant]
  7. METFORMIN (METFORMIN) [Concomitant]
  8. FUROSEMIDE (FUROSEMIDE) [Concomitant]
  9. PAXIL (PAROXETINE HYDROCHLORIDE) [Concomitant]
  10. AMLODIPINE (AMLODIPINE) [Concomitant]
  11. METOPROLOL (METORPOLOL) [Concomitant]
  12. MELATONIN (MELATONIN) [Concomitant]

REACTIONS (1)
  - Myocardial infarction [None]
